FAERS Safety Report 16656780 (Version 1)
Quarter: 2019Q3

REPORT INFORMATION
  Report Type: Spontaneous
  Country: HR (occurrence: HR)
  Receive Date: 20190801
  Receipt Date: 20190801
  Transmission Date: 20191004
  Serious: Yes (Other)
  Sender: FDA-Public Use
  Company Number: HR-JNJFOC-20190743515

PATIENT
  Age: 17 Year
  Sex: Female

DRUGS (3)
  1. ZALDIAR [Suspect]
     Active Substance: ACETAMINOPHEN\TRAMADOL HYDROCHLORIDE
     Indication: PRODUCT USED FOR UNKNOWN INDICATION
     Dosage: 4 DF (1 DF = 37.5 MG TRAMADOL + 325 MG PARACETAMOL).
     Route: 048
     Dates: start: 20190509, end: 20190509
  2. NORMABEL [Suspect]
     Active Substance: DIAZEPAM
     Indication: PRODUCT USED FOR UNKNOWN INDICATION
     Dosage: 6 MG
     Route: 048
     Dates: start: 20190509, end: 20190509
  3. DEXKETOPROFEN TROMETAMOL [Suspect]
     Active Substance: DEXKETOPROFEN TROMETAMOL
     Indication: PRODUCT USED FOR UNKNOWN INDICATION
     Dosage: 1 DF = 75 MG TRAMADOL + 25 MG DEXKETOPROFEN
     Route: 048
     Dates: start: 20190509, end: 20190509

REACTIONS (6)
  - Haematemesis [Unknown]
  - Vomiting [Unknown]
  - Intentional overdose [Unknown]
  - Somnolence [Unknown]
  - Abdominal pain upper [Unknown]
  - Suicide attempt [Unknown]

NARRATIVE: CASE EVENT DATE: 20190509
